FAERS Safety Report 4778356-X (Version None)
Quarter: 2005Q3

REPORT INFORMATION
  Report Type: 
  Country: None (occurrence: None)
  Receive Date: 20050926
  Receipt Date: 20050915
  Transmission Date: 20060218
  Serious: Yes (Death)
  Sender: FDA-Public Use
  Company Number: ID-JNJFOC-20050903649

PATIENT
  Age: 47 Year
  Sex: Male
  Weight: 55 kg

DRUGS (3)
  1. FENTANYL [Suspect]
     Route: 062
  2. FENTANYL [Suspect]
     Route: 062
  3. OCTREOTIDE [Concomitant]
     Route: 042

REACTIONS (2)
  - DELIRIUM [None]
  - LOSS OF CONSCIOUSNESS [None]
